FAERS Safety Report 18246791 (Version 1)
Quarter: 2020Q3

REPORT INFORMATION
  Report Type: Report from Study
  Country: CN (occurrence: CN)
  Receive Date: 20200909
  Receipt Date: 20200909
  Transmission Date: 20201103
  Serious: Yes (Other)
  Sender: FDA-Public Use
  Company Number: CN-PFIZER INC-2020345680

PATIENT

DRUGS (5)
  1. PREDNISONE. [Suspect]
     Active Substance: PREDNISONE
     Indication: IGA NEPHROPATHY
     Dosage: 0.5 MG/KG
  2. PREDNISONE. [Suspect]
     Active Substance: PREDNISONE
     Dosage: GRADUAL DECREASE OF HORMONE TO WITHDRAWAL
  3. BENAZEPRIL [Suspect]
     Active Substance: BENAZEPRIL HYDROCHLORIDE
     Indication: IGA NEPHROPATHY
     Dosage: 10 MG, DAILY
     Route: 048
  4. SOLU?MEDROL [Suspect]
     Active Substance: METHYLPREDNISOLONE SODIUM SUCCINATE
     Indication: IGA NEPHROPATHY
     Dosage: 0.5 G, DAILY, IN THE BEGINNING OF MONTHS 1, 3 AND 5 OF TREATMENT FOR 3D CONSECUTIVE PULSE
  5. SOLU?MEDROL [Suspect]
     Active Substance: METHYLPREDNISOLONE SODIUM SUCCINATE
     Dosage: GRADUAL DECREASE OF HORMONE TO WITHDRAWAL

REACTIONS (1)
  - Pneumonia [Recovering/Resolving]
